FAERS Safety Report 8271192-1 (Version None)
Quarter: 2012Q2

REPORT INFORMATION
  Report Type: 
  Country: None (occurrence: None)
  Receive Date: 20120410
  Receipt Date: 20120316
  Transmission Date: 20120825
  Serious: No
  Sender: FDA-Public Use
  Company Number: US-ROXANE LABORATORIES, INC.-2012-RO-00886RO

PATIENT
  Sex: Female

DRUGS (4)
  1. LOSARTAN POTASSIUM [Suspect]
     Indication: BLOOD PRESSURE
  2. CLONIDINE [Concomitant]
  3. LOSARTAN POTASSIUM [Suspect]
  4. CLONIDINE [Concomitant]

REACTIONS (8)
  - ABDOMINAL DISCOMFORT [None]
  - ABDOMINAL DISTENSION [None]
  - CONSTIPATION [None]
  - CANDIDIASIS [None]
  - DRY MOUTH [None]
  - DYSPEPSIA [None]
  - HYPERTENSION [None]
  - NAUSEA [None]
